FAERS Safety Report 9473145 (Version 2)
Quarter: 2013Q3

REPORT INFORMATION
  Report Type: Spontaneous
  Country: US (occurrence: US)
  Receive Date: 20130823
  Receipt Date: 20130823
  Transmission Date: 20140515
  Serious: Yes (Hospitalization, Other)
  Sender: FDA-Public Use
  Company Number: US-BRISTOL-MYERS SQUIBB COMPANY-17482357

PATIENT
  Age: 67 Year
  Sex: Female

DRUGS (9)
  1. SPRYCEL (PH+ALL) TABS [Suspect]
     Indication: CHRONIC MYELOID LEUKAEMIA
     Dosage: 26 FEB2013 50 MG TABS 2 TABS PER DAY?9MAR13-21MAR13?100MG:28FEB13-20MAR13
     Route: 048
     Dates: start: 20130228, end: 20130320
  2. BIAXIN [Suspect]
     Indication: SINUSITIS
     Dates: start: 20130311, end: 20130312
  3. ACETYLSALICYLIC ACID [Concomitant]
  4. CALCIUM [Concomitant]
  5. CENTRUM [Concomitant]
  6. FLONASE [Concomitant]
  7. LISINOPRIL [Concomitant]
  8. METFORMIN [Concomitant]
  9. PLAVIX [Concomitant]

REACTIONS (7)
  - Dyspnoea [Recovered/Resolved]
  - Anaemia [Unknown]
  - Oral herpes [Recovering/Resolving]
  - Hypotension [Recovering/Resolving]
  - Sinusitis [Recovered/Resolved]
  - Haematocrit decreased [Unknown]
  - Palpitations [Recovered/Resolved]
